FAERS Safety Report 4767416-5 (Version None)
Quarter: 2005Q3

REPORT INFORMATION
  Report Type: 
  Country: None (occurrence: None)
  Receive Date: 20050913
  Receipt Date: 20050526
  Transmission Date: 20060218
  Serious: Yes (Hospitalization, Disabling)
  Sender: FDA-Public Use
  Company Number: US-MERCK-0505USA03260

PATIENT
  Age: 64 Year
  Sex: Female
  Weight: 68 kg

DRUGS (4)
  1. DIOVAN [Concomitant]
     Indication: HYPERTENSION
     Route: 065
     Dates: start: 20030101
  2. CARTIA (DILTIAZEM HYDROCHLORIDE) [Concomitant]
     Indication: HYPERTENSION
     Route: 065
     Dates: start: 20030101
  3. CRESTOR [Concomitant]
     Indication: BLOOD CHOLESTEROL INCREASED
     Route: 065
  4. VIOXX [Suspect]
     Indication: ARTHRITIS
     Route: 048
     Dates: start: 20020101, end: 20040506

REACTIONS (4)
  - CAROTID ARTERY STENOSIS [None]
  - CEREBROVASCULAR ACCIDENT [None]
  - GASTROOESOPHAGEAL REFLUX DISEASE [None]
  - HYPERTENSION [None]
